FAERS Safety Report 6741366-7 (Version None)
Quarter: 2010Q2

REPORT INFORMATION
  Report Type: 
  Country: None (occurrence: None)
  Receive Date: 20100526
  Receipt Date: 20100514
  Transmission Date: 20101027
  Serious: Yes (Congenital Anomaly, Other)
  Sender: FDA-Public Use
  Company Number: PHHY2010NO31026

PATIENT
  Sex: Female
  Weight: 2.194 kg

DRUGS (4)
  1. VOLTAREN [Suspect]
     Dosage: 50 MG, TID
     Route: 064
  2. PARACET [Suspect]
     Dosage: 1 G, TID
     Route: 064
  3. TRANDATE [Suspect]
     Dosage: 100 MG, BID
     Route: 064
  4. FRAGMIN [Suspect]
     Dosage: 5000 IU, UNK
     Route: 064

REACTIONS (9)
  - ANAL ATRESIA [None]
  - ANAL FISTULA [None]
  - CONGENITAL HAND MALFORMATION [None]
  - DRUG EXPOSURE DURING PREGNANCY [None]
  - FOETAL GROWTH RETARDATION [None]
  - HYPOKINESIA [None]
  - MOTOR DYSFUNCTION [None]
  - PREMATURE BABY [None]
  - SMALL FOR DATES BABY [None]
